FAERS Safety Report 25064297 (Version 1)
Quarter: 2025Q1

REPORT INFORMATION
  Report Type: Spontaneous
  Country: CA (occurrence: CA)
  Receive Date: 20250311
  Receipt Date: 20250311
  Transmission Date: 20250408
  Serious: Yes (Other)
  Sender: ROCHE
  Company Number: CA-002147023-NVSC2025CA037102

PATIENT
  Age: 38 Year
  Sex: Female

DRUGS (3)
  1. OMALIZUMAB [Suspect]
     Active Substance: OMALIZUMAB
     Indication: Chronic spontaneous urticaria
     Route: 050
  2. OMALIZUMAB [Suspect]
     Active Substance: OMALIZUMAB
     Route: 050
  3. OMALIZUMAB [Suspect]
     Active Substance: OMALIZUMAB
     Route: 050

REACTIONS (7)
  - Chronic spontaneous urticaria [Unknown]
  - Mast cell activation syndrome [Unknown]
  - Diarrhoea [Unknown]
  - Vomiting [Unknown]
  - Pain in extremity [Unknown]
  - Urticaria [Unknown]
  - Needle issue [Unknown]
